FAERS Safety Report 5324746-6 (Version None)
Quarter: 2007Q2

REPORT INFORMATION
  Report Type: 
  Country: None (occurrence: None)
  Receive Date: 20070511
  Receipt Date: 20070511
  Transmission Date: 20071010
  Serious: Yes (Hospitalization)
  Sender: FDA-Public Use
  Company Number: None

PATIENT
  Sex: Male
  Weight: 65.9 kg

DRUGS (4)
  1. FLUOROURACIL [Suspect]
     Dosage: 4788 MG
     Dates: end: 20070416
  2. BEVACIZUMAB (RHUMAB VEGF) [Suspect]
     Dosage: 326 MG
     Dates: end: 20070416
  3. CAMPTOSAR [Suspect]
     Dosage: 308 MG
     Dates: end: 20070416
  4. LEUCOVORIN CALCIUM [Suspect]
     Dosage: 684 MG
     Dates: end: 20070416

REACTIONS (4)
  - CHILLS [None]
  - DIZZINESS [None]
  - FEBRILE NEUTROPENIA [None]
  - WHITE BLOOD CELL COUNT DECREASED [None]
